FAERS Safety Report 19566987 (Version 16)
Quarter: 2023Q2

REPORT INFORMATION
  Report Type: Spontaneous
  Country: PL (occurrence: None)
  Receive Date: 20210715
  Receipt Date: 20230428
  Transmission Date: 20230721
  Serious: Yes (Hospitalization, Other)
  Sender: FDA-Public Use
  Company Number: 2021A601522

PATIENT
  Age: 62 Year
  Sex: Male
  Weight: 98 kg

DRUGS (59)
  1. ROSUVASTATIN CALCIUM [Suspect]
     Active Substance: ROSUVASTATIN CALCIUM
     Indication: Hypertension
     Dosage: 40.0MG UNKNOWN
  2. ROSUVASTATIN CALCIUM [Suspect]
     Active Substance: ROSUVASTATIN CALCIUM
     Indication: Carotid arteriosclerosis
     Dosage: 40.0MG UNKNOWN
  3. ESOMEPRAZOLE [Suspect]
     Active Substance: ESOMEPRAZOLE
     Indication: Renal failure
  4. ESOMEPRAZOLE [Suspect]
     Active Substance: ESOMEPRAZOLE
     Indication: Antiplatelet therapy
  5. RAMIPRIL [Suspect]
     Active Substance: RAMIPRIL
     Indication: Coronary artery disease
     Dosage: 10 MG10.0MG UNKNOWN
  6. RAMIPRIL [Suspect]
     Active Substance: RAMIPRIL
     Indication: Cardiac failure
     Dosage: 10 MG10.0MG UNKNOWN
  7. RAMIPRIL [Suspect]
     Active Substance: RAMIPRIL
     Indication: Coronary artery disease
     Dosage: 10 MG10.0MG UNKNOWN
  8. RAMIPRIL [Suspect]
     Active Substance: RAMIPRIL
     Indication: Cardiac failure
     Dosage: 10 MG10.0MG UNKNOWN
  9. AMLODIPINE [Suspect]
     Active Substance: AMLODIPINE BESYLATE
     Indication: Cardiac failure
  10. AMLODIPINE [Suspect]
     Active Substance: AMLODIPINE BESYLATE
     Indication: Coronary artery disease
  11. AMLODIPINE [Suspect]
     Active Substance: AMLODIPINE BESYLATE
     Indication: Product used for unknown indication
  12. AMLODIPINE [Suspect]
     Active Substance: AMLODIPINE BESYLATE
     Indication: Product used for unknown indication
  13. FENOFIBRATE [Suspect]
     Active Substance: FENOFIBRATE
     Indication: Product used for unknown indication
  14. HYDROCHLOROTHIAZIDE [Suspect]
     Active Substance: HYDROCHLOROTHIAZIDE
     Indication: Product used for unknown indication
  15. FLUTICASONE PROPIONATE\SALMETEROL XINAFOATE [Suspect]
     Active Substance: FLUTICASONE PROPIONATE\SALMETEROL XINAFOATE
     Indication: Product used for unknown indication
     Dosage: 2 DF (250 UG +50 UG) INHALATION
     Route: 055
  16. TRIMETAZIDINE [Suspect]
     Active Substance: TRIMETAZIDINE
     Indication: Product used for unknown indication
  17. TRIMETAZIDINE [Suspect]
     Active Substance: TRIMETAZIDINE
     Indication: Product used for unknown indication
     Dosage: 20 MG, BID (MORNING AND EVENING)
  18. TELMISARTAN [Suspect]
     Active Substance: TELMISARTAN
     Indication: Product used for unknown indication
     Dosage: 80 MG, QD (IN MORNING)
  19. CARVEDILOL [Suspect]
     Active Substance: CARVEDILOL
     Indication: Product used for unknown indication
  20. CARVEDILOL [Suspect]
     Active Substance: CARVEDILOL
     Indication: Product used for unknown indication
  21. LINAGLIPTIN [Suspect]
     Active Substance: LINAGLIPTIN
     Indication: Product used for unknown indication
  22. ASPIRIN [Suspect]
     Active Substance: ASPIRIN
     Indication: Hypertension
     Dosage: 75 MG75.0MG UNKNOWN
  23. ASPIRIN [Suspect]
     Active Substance: ASPIRIN
     Indication: Postoperative care
     Dosage: 75 MG75.0MG UNKNOWN
  24. ASPIRIN [Suspect]
     Active Substance: ASPIRIN
     Indication: Carotid arteriosclerosis
     Dosage: 75 MG75.0MG UNKNOWN
  25. ASPIRIN [Suspect]
     Active Substance: ASPIRIN
     Indication: Hypertension
     Dosage: (IN THE EVENING)75.0MG UNKNOWN
  26. ASPIRIN [Suspect]
     Active Substance: ASPIRIN
     Indication: Postoperative care
     Dosage: (IN THE EVENING)75.0MG UNKNOWN
  27. ASPIRIN [Suspect]
     Active Substance: ASPIRIN
     Indication: Carotid arteriosclerosis
     Dosage: (IN THE EVENING)75.0MG UNKNOWN
  28. PANTOPRAZOLE SODIUM [Suspect]
     Active Substance: PANTOPRAZOLE SODIUM
     Indication: Helicobacter gastritis
     Dosage: 2X40 MG40.0MG UNKNOWN
  29. PANTOPRAZOLE SODIUM [Suspect]
     Active Substance: PANTOPRAZOLE SODIUM
     Indication: Helicobacter gastritis
     Dosage: (IN THE MORNING)20.0MG UNKNOWN
  30. BISOPROLOL FUMARATE [Suspect]
     Active Substance: BISOPROLOL FUMARATE
     Indication: Coronary artery disease
     Dosage: 8 MG8.0MG UNKNOWN
  31. BISOPROLOL FUMARATE [Suspect]
     Active Substance: BISOPROLOL FUMARATE
     Indication: Cardiac failure
     Dosage: 8 MG8.0MG UNKNOWN
  32. CLOPIDOGREL [Suspect]
     Active Substance: CLOPIDOGREL BISULFATE
     Indication: Product used for unknown indication
  33. CLOPIDOGREL BISULFATE [Suspect]
     Active Substance: CLOPIDOGREL BISULFATE
     Indication: Product used for unknown indication
  34. BISOPROLOL [Suspect]
     Active Substance: BISOPROLOL
     Indication: Cardiac failure
  35. BISOPROLOL [Suspect]
     Active Substance: BISOPROLOL
     Indication: Coronary artery disease
  36. ESOMEPRAZOLE [Concomitant]
     Active Substance: ESOMEPRAZOLE
     Indication: Renal failure
     Dosage: 20.0MG UNKNOWN
  37. ESOMEPRAZOLE [Concomitant]
     Active Substance: ESOMEPRAZOLE
     Indication: Antiplatelet therapy
     Dosage: 20.0MG UNKNOWN
  38. ESOMEPRAZOLE [Concomitant]
     Active Substance: ESOMEPRAZOLE
     Indication: Postoperative care
     Dosage: 20.0MG UNKNOWN
  39. ESOMEPRAZOLE [Concomitant]
     Active Substance: ESOMEPRAZOLE
     Indication: Product used for unknown indication
     Dosage: 20.0MG UNKNOWN
  40. ESOMEPRAZOLE [Concomitant]
     Active Substance: ESOMEPRAZOLE
     Indication: Renal failure
     Dosage: 20.0MG UNKNOWN
  41. ESOMEPRAZOLE [Concomitant]
     Active Substance: ESOMEPRAZOLE
     Indication: Antiplatelet therapy
     Dosage: 20.0MG UNKNOWN
  42. ESOMEPRAZOLE [Concomitant]
     Active Substance: ESOMEPRAZOLE
     Indication: Postoperative care
     Dosage: 20.0MG UNKNOWN
  43. ESOMEPRAZOLE [Concomitant]
     Active Substance: ESOMEPRAZOLE
     Indication: Product used for unknown indication
     Dosage: 20.0MG UNKNOWN
  44. ESOMEPRAZOLE [Concomitant]
     Active Substance: ESOMEPRAZOLE
     Indication: Renal failure
     Dosage: UNKNOWN
  45. ESOMEPRAZOLE [Concomitant]
     Active Substance: ESOMEPRAZOLE
     Indication: Antiplatelet therapy
     Dosage: UNKNOWN
  46. ESOMEPRAZOLE [Concomitant]
     Active Substance: ESOMEPRAZOLE
     Indication: Postoperative care
     Dosage: UNKNOWN
  47. ESOMEPRAZOLE [Concomitant]
     Active Substance: ESOMEPRAZOLE
     Indication: Product used for unknown indication
     Dosage: UNKNOWN
  48. CLOPIDOGREL HYDROCHLORIDE [Concomitant]
     Active Substance: CLOPIDOGREL HYDROCHLORIDE
     Indication: Postoperative care
  49. CARVEDILOL [Suspect]
     Active Substance: CARVEDILOL
  50. LINAGLIPTIN [Suspect]
     Active Substance: LINAGLIPTIN
  51. PANTOPRAZOLE [Suspect]
     Active Substance: PANTOPRAZOLE
  52. BISOPROLOL [Suspect]
     Active Substance: BISOPROLOL
  53. METFORMIN HYDROCHLORIDE [Suspect]
     Active Substance: METFORMIN HYDROCHLORIDE
  54. ROSUVASTATIN [Suspect]
     Active Substance: ROSUVASTATIN
  55. ESOMEPRAZOLE MAGNESIUM [Suspect]
     Active Substance: ESOMEPRAZOLE MAGNESIUM
  56. TRIMETAZIDINE [Suspect]
     Active Substance: TRIMETAZIDINE
  57. TELMISARTAN [Suspect]
     Active Substance: TELMISARTAN
  58. FENOBIBRATE [Suspect]
     Active Substance: FENOFIBRATE
  59. CARVEDILOL [Suspect]
     Active Substance: CARVEDILOL

REACTIONS (47)
  - Mitral valve incompetence [Unknown]
  - Dyspnoea at rest [Unknown]
  - Electrocardiogram Q wave abnormal [Unknown]
  - Hepatojugular reflux [Unknown]
  - Anaemia macrocytic [Unknown]
  - Rales [Unknown]
  - Acute myocardial infarction [Unknown]
  - Chronic kidney disease [Unknown]
  - Acute kidney injury [Unknown]
  - Helicobacter gastritis [Unknown]
  - Pericardial effusion [Unknown]
  - Carotid arteriosclerosis [Unknown]
  - Palpitations [Unknown]
  - Occult blood [Unknown]
  - Systolic dysfunction [Unknown]
  - Carotid artery stenosis [Unknown]
  - Oedema peripheral [Unknown]
  - Angiopathy [Unknown]
  - Asthenia [Unknown]
  - Diastolic dysfunction [Unknown]
  - Left ventricular hypertrophy [Unknown]
  - Cardiac failure [Unknown]
  - Tricuspid valve incompetence [Unknown]
  - Coronary artery stenosis [Unknown]
  - Aortic valve incompetence [Unknown]
  - Hyperlipidaemia [Unknown]
  - Ventricular hypokinesia [Unknown]
  - Hypotension [Unknown]
  - Fatigue [Unknown]
  - Supraventricular tachycardia [Unknown]
  - Rales [Unknown]
  - Ventricular arrhythmia [Unknown]
  - Intestinal obstruction [Unknown]
  - Syncope [Unknown]
  - Electrocardiogram QT prolonged [Unknown]
  - Physical examination abnormal [Unknown]
  - Skin lesion [Unknown]
  - Mitral valve incompetence [Unknown]
  - Pericardial disease [Unknown]
  - Ill-defined disorder [Unknown]
  - Left ventricular dysfunction [Unknown]
  - Cardiomegaly [Unknown]
  - Bundle branch block left [Unknown]
  - Joint swelling [Unknown]
  - Ejection fraction decreased [Unknown]
  - Cardiac discomfort [Unknown]
  - Stenosis [Unknown]

NARRATIVE: CASE EVENT DATE: 20190918
